FAERS Safety Report 7028732-X (Version None)
Quarter: 2010Q4

REPORT INFORMATION
  Report Type: 
  Country: None (occurrence: None)
  Receive Date: 20101005
  Receipt Date: 20091201
  Transmission Date: 20110411
  Serious: Yes (Hospitalization)
  Sender: FDA-Public Use
  Company Number: ZA-SANOFI-AVENTIS-200921601GDDC

PATIENT
  Age: 62 Year
  Sex: Female

DRUGS (7)
  1. DOCETAXEL [Suspect]
     Dosage: DOSE AS USED: 60 MG ON DAY 1, DAY 8, DAY 15
     Route: 042
     Dates: end: 20080430
  2. BETANOID [Concomitant]
     Indication: PROPHYLAXIS
     Route: 041
     Dates: start: 20080430, end: 20080430
  3. ZOMETA [Concomitant]
     Route: 041
     Dates: start: 20080430, end: 20080430
  4. TRAMADOL HCL [Concomitant]
     Route: 048
     Dates: start: 20080421, end: 20090329
  5. CELEBREX [Concomitant]
     Route: 048
     Dates: start: 20080421, end: 20090329
  6. CITALOPRAM HYDROBROMIDE [Concomitant]
     Indication: DEPRESSION
     Route: 048
     Dates: end: 20090329
  7. LANTUS [Concomitant]
     Route: 058
     Dates: end: 20090329

REACTIONS (1)
  - HYPERCALCAEMIA [None]
